FAERS Safety Report 6882870-0 (Version None)
Quarter: 2010Q3

REPORT INFORMATION
  Report Type: 
  Country: None (occurrence: None)
  Receive Date: 20100729
  Receipt Date: 20100728
  Transmission Date: 20110219
  Serious: Yes (Life-Threatening, Hospitalization)
  Sender: FDA-Public Use
  Company Number: CZ-SANOFI-AVENTIS-2010SA044222

PATIENT
  Age: 57 Year
  Sex: Male
  Weight: 80 kg

DRUGS (9)
  1. TAXOTERE [Suspect]
     Indication: PROSTATE CANCER
     Route: 051
     Dates: start: 20100701, end: 20100701
  2. ELIGARD [Suspect]
     Indication: PROSTATE CANCER
     Route: 065
     Dates: start: 20100701, end: 20100701
  3. CASODEX [Suspect]
     Indication: PROSTATE CANCER
     Route: 048
     Dates: start: 20100701, end: 20100701
  4. ANTIHYPERTENSIVES [Concomitant]
  5. INSULIN [Concomitant]
  6. DIURETICS [Concomitant]
  7. ANALGESICS [Concomitant]
  8. OTHER ANTIDIARRHOEALS [Concomitant]
  9. ANTIEMETICS AND ANTINAUSEANTS [Concomitant]

REACTIONS (1)
  - HYPERKALAEMIA [None]
